FAERS Safety Report 8939037 (Version 5)
Quarter: 2014Q2

REPORT INFORMATION
  Report Type: Spontaneous
  Country: US (occurrence: US)
  Receive Date: 20121203
  Receipt Date: 20140603
  Transmission Date: 20141212
  Serious: Yes (Other)
  Sender: FDA-Public Use
  Company Number: US-PFIZER INC-2012301861

PATIENT
  Age: 49 Year
  Sex: Female
  Weight: 115.65 kg

DRUGS (5)
  1. LYRICA [Suspect]
     Indication: NEUROPATHY PERIPHERAL
     Dosage: 150 MG, 3X/DAY
  2. LYRICA [Suspect]
     Indication: FIBROMYALGIA
  3. EFFEXOR XR [Suspect]
     Dosage: UNK
  4. LOZOL [Concomitant]
     Indication: HYPERTENSION
     Dosage: 1.25 MG, DAILY
  5. METFORMIN [Concomitant]
     Indication: GLUCOSE TOLERANCE IMPAIRED
     Dosage: 500 MG, 2X/DAY

REACTIONS (8)
  - Tooth infection [Unknown]
  - Obesity [Unknown]
  - Arthropathy [Unknown]
  - Dental caries [Unknown]
  - Ligament sprain [Unknown]
  - Fibromyalgia [Unknown]
  - Pain [Unknown]
  - Arthralgia [Unknown]
